FAERS Safety Report 13666917 (Version 1)
Quarter: 2017Q2

REPORT INFORMATION
  Report Type: Spontaneous
  Country: US (occurrence: US)
  Receive Date: 20170619
  Receipt Date: 20170619
  Transmission Date: 20170830
  Serious: No
  Sender: FDA-Public Use
  Company Number: US-ROCHE-1058838

PATIENT
  Sex: Female

DRUGS (1)
  1. XELODA [Suspect]
     Active Substance: CAPECITABINE
     Indication: PRODUCT USED FOR UNKNOWN INDICATION
     Route: 065

REACTIONS (11)
  - Pain of skin [Unknown]
  - Haemorrhage [Unknown]
  - Skin ulcer [Unknown]
  - Skin exfoliation [Unknown]
  - Unevaluable event [Unknown]
  - Hyperaesthesia [Unknown]
  - Rash [Unknown]
  - Pain in extremity [Unknown]
  - Hyperkeratosis [Unknown]
  - Ill-defined disorder [Unknown]
  - Skin discolouration [Unknown]
